FAERS Safety Report 18928517 (Version 1)
Quarter: 2021Q1

REPORT INFORMATION
  Report Type: Spontaneous
  Country: US (occurrence: US)
  Receive Date: 20210223
  Receipt Date: 20210223
  Transmission Date: 20210420
  Serious: Yes (Death, Hospitalization)
  Sender: FDA-Public Use
  Company Number: None

PATIENT
  Sex: Female
  Weight: 44.4 kg

DRUGS (1)
  1. APIXABAN [Suspect]
     Active Substance: APIXABAN
     Indication: ATRIAL FIBRILLATION
     Route: 048
     Dates: start: 20191219

REACTIONS (5)
  - Pulmonary alveolar haemorrhage [None]
  - Pneumonia [None]
  - Septic shock [None]
  - Atrial fibrillation [None]
  - Pulmonary fibrosis [None]
